FAERS Safety Report 8960189 (Version 3)
Quarter: 2014Q2

REPORT INFORMATION
  Report Type: Spontaneous
  Country: JP (occurrence: JP)
  Receive Date: 20121212
  Receipt Date: 20140528
  Transmission Date: 20141212
  Serious: Yes (Hospitalization, Other)
  Sender: FDA-Public Use
  Company Number: PHHY2012JP112986

PATIENT
  Age: 54 Year
  Sex: Female
  Weight: 45 kg

DRUGS (6)
  1. FEMARA [Suspect]
     Indication: BREAST CANCER
     Route: 048
     Dates: start: 2007
  2. EPIRUBICIN [Suspect]
  3. TOREMIFENE [Suspect]
     Indication: ANTIOESTROGEN THERAPY
     Dates: start: 201010
  4. CYCLOPHOSPHAMIDE [Suspect]
  5. RADIOTHERAPY [Concomitant]
  6. POLYENE PHOSPHATIDYLCHOLINE [Concomitant]

REACTIONS (15)
  - Non-alcoholic steatohepatitis [Unknown]
  - Aspartate aminotransferase increased [Unknown]
  - Alanine aminotransferase increased [Unknown]
  - Blood alkaline phosphatase increased [Unknown]
  - Ammonia increased [Unknown]
  - Hepatic steatosis [Unknown]
  - Glucose tolerance impaired [Unknown]
  - Blood triglycerides increased [Unknown]
  - Diabetes mellitus [Unknown]
  - Serum ferritin increased [Unknown]
  - Blood albumin increased [Unknown]
  - Hepatic cirrhosis [Unknown]
  - Ascites [Unknown]
  - Liver function test abnormal [Unknown]
  - Oedema peripheral [Unknown]
